FAERS Safety Report 16278253 (Version 1)
Quarter: 2019Q2

REPORT INFORMATION
  Report Type: Spontaneous
  Country: CA (occurrence: CA)
  Receive Date: 20190506
  Receipt Date: 20190506
  Transmission Date: 20190711
  Serious: Yes (Death)
  Sender: FDA-Public Use
  Company Number: CA-PFIZER INC-2018109743

PATIENT
  Age: 77 Year
  Sex: Male

DRUGS (1)
  1. SUTENT [Suspect]
     Active Substance: SUNITINIB MALATE
     Dosage: 37.5 MG, CYCLIC (1X/DAY FOR 21 DAYS, THEN ONE WEEK OFF)
     Route: 048
     Dates: start: 20180320

REACTIONS (1)
  - Death [Fatal]

NARRATIVE: CASE EVENT DATE: 20181210
